FAERS Safety Report 7444796-3 (Version None)
Quarter: 2011Q2

REPORT INFORMATION
  Report Type: 
  Country: None (occurrence: None)
  Receive Date: 20110429
  Receipt Date: 20110418
  Transmission Date: 20111010
  Serious: Yes (Hospitalization)
  Sender: FDA-Public Use
  Company Number: IT-SANOFI-AVENTIS-2011SA023751

PATIENT
  Age: 48 Year
  Sex: Female

DRUGS (2)
  1. FUROSEMIDE [Suspect]
     Indication: SYSTOLIC HYPERTENSION
     Route: 065
  2. CITALOPRAM [Suspect]
     Indication: MAJOR DEPRESSION
     Route: 065

REACTIONS (5)
  - LONG QT SYNDROME [None]
  - HYPOCHLORAEMIA [None]
  - SYNCOPE [None]
  - HYPOKALAEMIA [None]
  - TORSADE DE POINTES [None]
